FAERS Safety Report 10589434 (Version 1)
Quarter: 2014Q4

REPORT INFORMATION
  Report Type: Spontaneous
  Country: DE (occurrence: DE)
  Receive Date: 20141118
  Receipt Date: 20141118
  Transmission Date: 20150529
  Serious: Yes (Other)
  Sender: FDA-Public Use
  Company Number: DE-AMGEN-DEUSP2014087837

PATIENT

DRUGS (1)
  1. MIMPARA [Suspect]
     Active Substance: CINACALCET HYDROCHLORIDE
     Indication: BLOOD PARATHYROID HORMONE INCREASED
     Dosage: 30 MG, QD
     Route: 065

REACTIONS (3)
  - Hyperparathyroidism [Unknown]
  - Gout [Unknown]
  - Blood calcium abnormal [Recovered/Resolved]

NARRATIVE: CASE EVENT DATE: 2014
